FAERS Safety Report 12735762 (Version 2)
Quarter: 2016Q4

REPORT INFORMATION
  Report Type: Spontaneous
  Country: JP (occurrence: JP)
  Receive Date: 20160912
  Receipt Date: 20161025
  Transmission Date: 20170207
  Serious: Yes (Hospitalization)
  Sender: FDA-Public Use
  Company Number: JP-ACTELION-A-CH2016-139648

PATIENT
  Age: 74 Year
  Sex: Female

DRUGS (21)
  1. OPSUMIT [Suspect]
     Active Substance: MACITENTAN
     Indication: PULMONARY ARTERIAL HYPERTENSION
     Dosage: 10 MG, QD
     Route: 048
     Dates: start: 20160711, end: 20160722
  2. AZOSEMIDE [Concomitant]
     Active Substance: AZOSEMIDE
     Dosage: 120 MG, OD
  3. SPIRONOLACTONE. [Concomitant]
     Active Substance: SPIRONOLACTONE
  4. LEVOTHYROXINE SODIUM. [Concomitant]
     Active Substance: LEVOTHYROXINE SODIUM
  5. AROTINOLOL HYDROCHLORIDE [Concomitant]
     Active Substance: AROTINOLOL HYDROCHLORIDE
  6. WARFARIN [Concomitant]
     Active Substance: WARFARIN
  7. DOMPERIDONE [Concomitant]
     Active Substance: DOMPERIDONE
  8. MAGNESIUM OXIDE. [Concomitant]
     Active Substance: MAGNESIUM OXIDE
  9. TERIPARATIDE [Concomitant]
     Active Substance: TERIPARATIDE
  10. LEVOCARNITINE. [Concomitant]
     Active Substance: LEVOCARNITINE
  11. SHAKUYAKUKANZOTO [Concomitant]
     Active Substance: HERBALS
  12. OXYGEN. [Concomitant]
     Active Substance: OXYGEN
  13. ACETAMINOPHEN. [Concomitant]
     Active Substance: ACETAMINOPHEN
  14. AMINOPHYLLINE. [Concomitant]
     Active Substance: AMINOPHYLLINE
  15. TORASEMIDE [Concomitant]
     Active Substance: TORSEMIDE
  16. PIMOBENDAN [Concomitant]
     Active Substance: PIMOBENDAN
  17. DOCARPAMINE [Concomitant]
     Active Substance: DOCARPAMINE
  18. BROTIZOLAM [Concomitant]
     Active Substance: BROTIZOLAM
  19. LEVODOPA CARBID [Concomitant]
  20. FUROSEMIDE. [Concomitant]
     Active Substance: FUROSEMIDE
  21. IMIDAPRIL HYDROCHLORIDE [Concomitant]
     Active Substance: IMIDAPRIL HYDROCHLORIDE

REACTIONS (2)
  - Urine output decreased [Recovering/Resolving]
  - Weight increased [Recovering/Resolving]

NARRATIVE: CASE EVENT DATE: 20160711
